FAERS Safety Report 26206391 (Version 1)
Quarter: 2025Q4

REPORT INFORMATION
  Report Type: Spontaneous
  Country: ZA (occurrence: ZA)
  Receive Date: 20251229
  Receipt Date: 20251229
  Transmission Date: 20260118
  Serious: Yes (Other)
  Sender: PHARMOBEDIENT CONSULTING, LLC
  Company Number: ZA-Pharmobedient-000740

PATIENT
  Age: 39 Year
  Sex: Male
  Weight: 0 kg

DRUGS (3)
  1. CABERGOLINE [Suspect]
     Active Substance: CABERGOLINE
     Indication: Prolactin-producing pituitary tumour
     Route: 048
  2. HYDROCORTISONE [Suspect]
     Active Substance: HYDROCORTISONE
     Indication: Prolactin-producing pituitary tumour
  3. THYROXINE [Suspect]
     Active Substance: LEVOTHYROXINE
     Indication: Prolactin-producing pituitary tumour

REACTIONS (1)
  - Cerebrospinal fluid leakage [Unknown]
